FAERS Safety Report 23673433 (Version 1)
Quarter: 2024Q1

REPORT INFORMATION
  Report Type: Spontaneous
  Country: CA (occurrence: CA)
  Receive Date: 20240326
  Receipt Date: 20240326
  Transmission Date: 20240410
  Serious: No
  Sender: FDA-Public Use
  Company Number: CA-PFIZER INC-202400061318

PATIENT
  Age: 53 Year
  Sex: Female

DRUGS (2)
  1. ABRILADA [Suspect]
     Active Substance: ADALIMUMAB-AFZB
     Indication: Hidradenitis
     Dosage: 1 DF, W 0=160 MG, W 2=80 MG THEN 40 MG EVERY WEEK STARTING WEEK 4 SC, PREFILLED PEN
     Route: 058
     Dates: start: 20230222
  2. ABRILADA [Suspect]
     Active Substance: ADALIMUMAB-AFZB
     Dosage: 80 MG, WEEKLY
     Route: 058

REACTIONS (1)
  - Device difficult to use [Unknown]
